FAERS Safety Report 6380458-1 (Version None)
Quarter: 2009Q3

REPORT INFORMATION
  Report Type: 
  Country: None (occurrence: None)
  Receive Date: 20090929
  Receipt Date: 20090922
  Transmission Date: 20100115
  Serious: Yes (Other)
  Sender: FDA-Public Use
  Company Number: FR-BRISTOL-MYERS SQUIBB COMPANY-14793913

PATIENT
  Age: 63 Year
  Sex: Female

DRUGS (2)
  1. APROVEL TABS 150 MG [Suspect]
     Route: 048
     Dates: start: 20030101
  2. VASTAREL [Concomitant]
     Route: 048

REACTIONS (4)
  - ACNE [None]
  - BLISTER [None]
  - LIP SWELLING [None]
  - RASH [None]
